FAERS Safety Report 9736133 (Version 1)
Quarter: 2013Q4

REPORT INFORMATION
  Report Type: Spontaneous
  Country: US (occurrence: US)
  Receive Date: 20131206
  Receipt Date: 20131206
  Transmission Date: 20140711
  Serious: Yes (Other)
  Sender: FDA-Public Use
  Company Number: CHPA2013US018013

PATIENT
  Age: 78 Year
  Sex: Male

DRUGS (1)
  1. NODOZ [Suspect]
     Indication: DEPRESSED LEVEL OF CONSCIOUSNESS
     Dosage: 1/2 A PILL, UNK
     Route: 048

REACTIONS (1)
  - Drug dependence [Unknown]
